FAERS Safety Report 8613493 (Version 3)
Quarter: 2012Q4

REPORT INFORMATION
  Report Type: Report from Study
  Country: JP (occurrence: US)
  Receive Date: 20120614
  Receipt Date: 20121007
  Transmission Date: 20130627
  Serious: Yes (Hospitalization, Other)
  Sender: FDA-Public Use
  Company Number: US-BRISTOL-MYERS SQUIBB COMPANY-16684383

PATIENT
  Age: 33 Year
  Sex: Male

DRUGS (3)
  1. ARIPIPRAZOLE [Suspect]
     Indication: SCHIZOPHRENIA
     Route: 030
     Dates: start: 20120110, end: 20120511
  2. COGENTIN [Concomitant]
     Dates: start: 20111202
  3. REMERON [Concomitant]
     Dosage: Restat:25May2012-ong.
     Dates: start: 20120525

REACTIONS (1)
  - Schizophrenia, paranoid type [Recovered/Resolved]
